FAERS Safety Report 8439710-8 (Version None)
Quarter: 2012Q2

REPORT INFORMATION
  Report Type: 
  Country: None (occurrence: None)
  Receive Date: 20120615
  Receipt Date: 20120607
  Transmission Date: 20120825
  Serious: Yes (Hospitalization)
  Sender: FDA-Public Use
  Company Number: ES-SANOFI-AVENTIS-2012SA040845

PATIENT
  Age: 92 Year
  Sex: Female

DRUGS (5)
  1. ALL OTHER THERAPEUTIC PRODUCTS [Concomitant]
  2. LANTUS [Concomitant]
     Dosage: 100 UI/ML 1 VIAL 5ML
  3. FUROSEMIDE [Suspect]
     Dosage: PHARMACEUTICAL FORM:245
     Route: 048
     Dates: start: 20111024
  4. ASPIRIN [Concomitant]
     Dosage: PHARMACEUTICAL DOSAGE FORM: 9, ADIRO 100MG COMPRIMIDOS RECUBIERTOS, 30 COMPRIMIDOS
  5. ATACAND [Interacting]
     Dosage: PHARMACEUTICAL FORM:245
     Route: 048
     Dates: start: 20110902

REACTIONS (2)
  - SYNCOPE [None]
  - DRUG INTERACTION [None]
